FAERS Safety Report 4384022-5 (Version None)
Quarter: 2004Q2

REPORT INFORMATION
  Report Type: 
  Country: None (occurrence: None)
  Receive Date: 20040624
  Receipt Date: 20040615
  Transmission Date: 20050107
  Serious: Yes (Other)
  Sender: FDA-Public Use
  Company Number: PHNR2004AU01079

PATIENT
  Age: 73 Year
  Sex: Female

DRUGS (4)
  1. ZELMAC [Suspect]
     Dosage: 3 MG, BID
     Route: 048
     Dates: start: 20040529, end: 20040605
  2. ZELMAC [Suspect]
     Dosage: 6 MG, BID
     Route: 048
     Dates: start: 20040606, end: 20040606
  3. PLAVIX [Concomitant]
     Indication: ANTICOAGULANT THERAPY
     Dosage: LONGTERM
  4. CARTIA [Concomitant]

REACTIONS (1)
  - HAEMATURIA [None]
